FAERS Safety Report 13460260 (Version 3)
Quarter: 2025Q4

REPORT INFORMATION
  Report Type: Report from Study
  Country: BR (occurrence: BR)
  Receive Date: 20170420
  Receipt Date: 20251125
  Transmission Date: 20260118
  Serious: Yes (Hospitalization, Other)
  Sender: JOHNSON AND JOHNSON
  Company Number: BR-JNJFOC-20170415325

PATIENT
  Age: 27 Year
  Sex: Male
  Weight: 50 kg

DRUGS (5)
  1. INFLIXIMAB [Suspect]
     Active Substance: INFLIXIMAB
     Indication: Crohn^s disease
     Route: 041
     Dates: start: 2016
  2. REMICADE [Suspect]
     Active Substance: INFLIXIMAB
     Indication: Crohn^s disease
     Route: 041
     Dates: start: 20160511, end: 20160818
  3. REMICADE [Suspect]
     Active Substance: INFLIXIMAB
     Route: 041
  4. INFLIXIMAB [Suspect]
     Active Substance: INFLIXIMAB
     Indication: Crohn^s disease
  5. AZATHIOPRINE [Concomitant]
     Active Substance: AZATHIOPRINE
     Indication: Product used for unknown indication
     Route: 065

REACTIONS (14)
  - Pneumonia [Recovered/Resolved]
  - Gastroenteritis [Unknown]
  - Tuberculosis [Recovered/Resolved]
  - Intestinal stenosis [Unknown]
  - Intestinal obstruction [Unknown]
  - Hospitalisation [Recovered/Resolved]
  - Pulmonary thrombosis [Recovered/Resolved]
  - Testicular cyst [Unknown]
  - Crohn^s disease [Not Recovered/Not Resolved]
  - Folliculitis [Unknown]
  - Weight increased [Unknown]
  - Incorrect dose administered [Unknown]
  - Product preparation issue [Unknown]
  - Off label use [Unknown]

NARRATIVE: CASE EVENT DATE: 20160101
